FAERS Safety Report 4392126-6 (Version None)
Quarter: 2004Q3

REPORT INFORMATION
  Report Type: 
  Country: None (occurrence: None)
  Receive Date: 20040702
  Receipt Date: 20031204
  Transmission Date: 20050211
  Serious: Yes (Other)
  Sender: FDA-Public Use
  Company Number: 2003UW16066

PATIENT
  Age: 84 Year
  Sex: Female
  Weight: 62.5964 kg

DRUGS (4)
  1. CRESTOR [Suspect]
     Indication: BLOOD CHOLESTEROL INCREASED
     Dosage: 10 MG PO
     Route: 048
     Dates: start: 20031101
  2. CRESTOR [Suspect]
     Indication: BLOOD CHOLESTEROL INCREASED
     Dosage: 5 MG QOD PO
     Route: 048
  3. ATENOLOL [Concomitant]
  4. THIAZIDE [Concomitant]

REACTIONS (3)
  - DIARRHOEA [None]
  - HOT FLUSH [None]
  - SNEEZING [None]
